FAERS Safety Report 8916333 (Version 2)
Quarter: 2014Q2

REPORT INFORMATION
  Report Type: Spontaneous
  Country: US (occurrence: US)
  Receive Date: 20121120
  Receipt Date: 20131018
  Transmission Date: 20141212
  Serious: Yes (Other)
  Sender: FDA-Public Use
  Company Number: US-PFIZER INC-2012288106

PATIENT
  Age: 46 Year
  Sex: Male

DRUGS (1)
  1. NITROGLYCERIN [Suspect]
     Indication: CHEST PAIN
     Dosage: 0.4MG, A REPEAT DOSE IN 5 MIN
     Route: 060

REACTIONS (4)
  - Loss of consciousness [Recovered/Resolved]
  - Atrioventricular block complete [Recovered/Resolved]
  - Ventricular asystole [Recovered/Resolved]
  - Dizziness [Recovered/Resolved]
